FAERS Safety Report 5049377-7 (Version None)
Quarter: 2006Q3

REPORT INFORMATION
  Report Type: 
  Country: None (occurrence: None)
  Receive Date: 20060707
  Receipt Date: 20060630
  Transmission Date: 20061208
  Serious: Yes (Other)
  Sender: FDA-Public Use
  Company Number: HQWYE526130JUN06

PATIENT
  Sex: Female

DRUGS (1)
  1. INDERAL [Suspect]

REACTIONS (3)
  - BREAST CANCER FEMALE [None]
  - OSTEOPOROSIS [None]
  - RHEUMATOID ARTHRITIS [None]
